FAERS Safety Report 15861502 (Version 3)
Quarter: 2019Q1

REPORT INFORMATION
  Report Type: Spontaneous
  Country: JP (occurrence: JP)
  Receive Date: 20190124
  Receipt Date: 20190222
  Transmission Date: 20190417
  Serious: Yes (Disabling)
  Sender: FDA-Public Use
  Company Number: JP-ROCHE-2250609

PATIENT
  Age: 63 Year
  Sex: Male

DRUGS (9)
  1. TIMOLOL MALEATE/TRAVOPROST [Concomitant]
     Active Substance: TIMOLOL MALEATE\TRAVOPROST
  2. CRAVIT [Concomitant]
     Active Substance: LEVOFLOXACIN
     Indication: DRUG ERUPTION
  3. TELGIN G DRY SYRUP (CLEMASTINE FUMARATE) [Suspect]
     Active Substance: CLEMASTINE FUMARATE
     Indication: PRODUCT USED FOR UNKNOWN INDICATION
     Route: 048
     Dates: start: 20190110
  4. CALONAL [Concomitant]
     Active Substance: ACETAMINOPHEN
     Route: 048
  5. DEXTROMETHORPHAN HYDROBROMIDE. [Concomitant]
     Active Substance: DEXTROMETHORPHAN HYDROBROMIDE
     Route: 048
     Dates: start: 20190110
  6. KYORIN AP 2 [Concomitant]
     Active Substance: SIMETRIDE
     Route: 048
     Dates: start: 20190110
  7. TARIVID [Concomitant]
     Active Substance: OFLOXACIN
     Indication: DRUG ERUPTION
  8. XOFLUZA [Suspect]
     Active Substance: BALOXAVIR MARBOXIL
     Indication: INFLUENZA
     Route: 048
     Dates: start: 20190110, end: 20190110
  9. L-CARBOCISTEINE [Concomitant]
     Active Substance: CARBOCYSTEINE
     Route: 048
     Dates: start: 20190110

REACTIONS (1)
  - Angle closure glaucoma [Unknown]

NARRATIVE: CASE EVENT DATE: 20190110
